FAERS Safety Report 16250104 (Version 5)
Quarter: 2019Q3

REPORT INFORMATION
  Report Type: Spontaneous
  Country: JP (occurrence: JP)
  Receive Date: 20190429
  Receipt Date: 20190712
  Transmission Date: 20191004
  Serious: Yes (Death, Hospitalization, Other)
  Sender: FDA-Public Use
  Company Number: JP-PFIZER INC-2019178303

PATIENT
  Age: 61 Year
  Sex: Female
  Weight: 49.4 kg

DRUGS (2)
  1. IRINOTECAN HCL [Suspect]
     Active Substance: IRINOTECAN HYDROCHLORIDE
     Indication: OVARIAN CANCER
     Dosage: UNK, 1X/DAY
     Route: 041
     Dates: start: 2006
  2. CISPLATIN. [Suspect]
     Active Substance: CISPLATIN
     Indication: OVARIAN CANCER
     Dosage: UNK, 1X/DAY
     Route: 041
     Dates: start: 2006

REACTIONS (2)
  - Second primary malignancy [Fatal]
  - Chloroma [Fatal]

NARRATIVE: CASE EVENT DATE: 20160804
